FAERS Safety Report 9525556 (Version 1)
Quarter: 2013Q1

REPORT INFORMATION
  Report Type: Spontaneous
  Country: US (occurrence: None)
  Receive Date: 20130314
  Receipt Date: 20130314
  Transmission Date: 20140127
  Serious: Yes (Hospitalization, Other)
  Sender: FDA-Public Use
  Company Number: ADR-2013-00407

PATIENT
  Sex: Male

DRUGS (2)
  1. LIORESAL [Suspect]
     Indication: MUSCLE SPASTICITY
  2. DILAUDID [Concomitant]

REACTIONS (10)
  - Thrombosis [None]
  - Confusional state [None]
  - Dehydration [None]
  - Fall [None]
  - Malaise [None]
  - Incoherent [None]
  - Pain [None]
  - Muscle spasms [None]
  - Aphasia [None]
  - Unevaluable event [None]
